FAERS Safety Report 12912747 (Version 3)
Quarter: 2016Q4

REPORT INFORMATION
  Report Type: Spontaneous
  Country: US (occurrence: US)
  Receive Date: 20161104
  Receipt Date: 20161219
  Transmission Date: 20170207
  Serious: Yes (Disabling, Other)
  Sender: FDA-Public Use
  Company Number: US-PFIZER INC-2016510921

PATIENT
  Age: 61 Year
  Sex: Female
  Weight: 57 kg

DRUGS (6)
  1. CLONAZEPAM. [Concomitant]
     Active Substance: CLONAZEPAM
     Dosage: UNK
  2. LAMOTRIGINE. [Concomitant]
     Active Substance: LAMOTRIGINE
     Dosage: 100 MG, UNK
  3. LATUDA [Suspect]
     Active Substance: LURASIDONE HYDROCHLORIDE
     Indication: BIPOLAR DISORDER
     Dosage: 20 MG, UNK
     Route: 048
  4. GEODON [Suspect]
     Active Substance: ZIPRASIDONE HYDROCHLORIDE\ZIPRASIDONE MESYLATE
     Indication: BIPOLAR DISORDER
     Dosage: 40 MG, UNK
  5. CITALOPRAM [Concomitant]
     Active Substance: CITALOPRAM HYDROBROMIDE
     Dosage: UNK
  6. LATUDA [Suspect]
     Active Substance: LURASIDONE HYDROCHLORIDE
     Dosage: 20 MG, 1X/DAY /EACH EVENING)
     Route: 048
     Dates: end: 20160513

REACTIONS (14)
  - Oral mucosal blistering [Not Recovered/Not Resolved]
  - Restlessness [Not Recovered/Not Resolved]
  - Grimacing [Not Recovered/Not Resolved]
  - Depression [Recovering/Resolving]
  - Anxiety [Recovering/Resolving]
  - Insomnia [Not Recovered/Not Resolved]
  - Pain in extremity [Not Recovered/Not Resolved]
  - Amnesia [Not Recovered/Not Resolved]
  - Dysmorphism [Not Recovered/Not Resolved]
  - Tardive dyskinesia [Not Recovered/Not Resolved]
  - Suicide attempt [Not Recovered/Not Resolved]
  - Dyskinesia [Recovering/Resolving]
  - Crying [Recovering/Resolving]
  - Suicidal ideation [Not Recovered/Not Resolved]

NARRATIVE: CASE EVENT DATE: 20161014
